FAERS Safety Report 4692110-9 (Version None)
Quarter: 2005Q2

REPORT INFORMATION
  Report Type: 
  Country: None (occurrence: None)
  Receive Date: 20050614
  Receipt Date: 20050601
  Transmission Date: 20051028
  Serious: Yes (Disabling)
  Sender: FDA-Public Use
  Company Number: 2005085296

PATIENT
  Sex: Female

DRUGS (2)
  1. CELEBREX [Suspect]
     Indication: INFLAMMATION
  2. VIOXX [Suspect]
     Indication: INFLAMMATION

REACTIONS (1)
  - THERAPY RESPONDER [None]
